FAERS Safety Report 23653268 (Version 1)
Quarter: 2024Q1

REPORT INFORMATION
  Report Type: Report from Study
  Country: US (occurrence: US)
  Receive Date: 20240320
  Receipt Date: 20240320
  Transmission Date: 20240409
  Serious: Yes (Hospitalization)
  Sender: FDA-Public Use
  Company Number: US-PFIZER INC-PV202400037148

PATIENT
  Age: 75 Year
  Sex: Female

DRUGS (4)
  1. HALCION [Suspect]
     Active Substance: TRIAZOLAM
     Indication: Sleep disorder
     Dosage: 0.25 MG
  2. HALCION [Suspect]
     Active Substance: TRIAZOLAM
     Dosage: 0.125 MG
  3. INGREZZA [Suspect]
     Active Substance: VALBENAZINE
     Indication: Tardive dyskinesia
     Dosage: 80 MG, DAILY
     Route: 048
  4. MIDODRINE [Suspect]
     Active Substance: MIDODRINE
     Indication: Hypotension
     Dosage: UNK

REACTIONS (2)
  - Blood pressure decreased [Recovered/Resolved]
  - Loss of consciousness [Recovered/Resolved]

NARRATIVE: CASE EVENT DATE: 20240126
